FAERS Safety Report 5833475-1 (Version None)
Quarter: 2008Q3

REPORT INFORMATION
  Report Type: 
  Country: None (occurrence: None)
  Receive Date: 20080805
  Receipt Date: 20080730
  Transmission Date: 20090109
  Serious: Yes (Other)
  Sender: FDA-Public Use
  Company Number: US-BAYER-200824133NA

PATIENT
  Age: 33 Year
  Sex: Female
  Weight: 65 kg

DRUGS (3)
  1. MIRENA [Suspect]
     Indication: CONTRACEPTION
     Route: 015
     Dates: start: 20080331, end: 20080616
  2. VITAMIN [Concomitant]
  3. PROZAC [Concomitant]
     Indication: POSTPARTUM DEPRESSION
     Dosage: TOTAL DAILY DOSE: 20 MG
     Route: 048
     Dates: start: 20080220

REACTIONS (4)
  - ABDOMINAL PAIN [None]
  - AMNESIA [None]
  - IRRITABILITY [None]
  - NAUSEA [None]
